FAERS Safety Report 12711956 (Version 1)
Quarter: 2016Q3

REPORT INFORMATION
  Report Type: Report from Study
  Country: BR (occurrence: BR)
  Receive Date: 20160902
  Receipt Date: 20160902
  Transmission Date: 20161109
  Serious: Yes (Death, Hospitalization)
  Sender: FDA-Public Use
  Company Number: PHHY2016BR120306

PATIENT
  Sex: Female

DRUGS (1)
  1. EXELON [Suspect]
     Active Substance: RIVASTIGMINE TARTRATE
     Indication: DEMENTIA ALZHEIMER^S TYPE
     Dosage: 1 DF, UNK
     Route: 048

REACTIONS (5)
  - Mobility decreased [Unknown]
  - Respiratory failure [Fatal]
  - Wrong technique in product usage process [Unknown]
  - Cerebrovascular accident [Unknown]
  - Speech disorder [Unknown]
